FAERS Safety Report 9029691 (Version 1)
Quarter: 2013Q1

REPORT INFORMATION
  Report Type: Spontaneous
  Country: US (occurrence: US)
  Receive Date: 20130124
  Receipt Date: 20130124
  Transmission Date: 20140127
  Serious: Yes (Hospitalization)
  Sender: FDA-Public Use
  Company Number: US-B.I. PHARMACEUTICALS,INC./RIDGEFIELD-2013-BI-01386BP

PATIENT
  Age: 67 Year
  Sex: Male
  Weight: 87 kg

DRUGS (8)
  1. SPIRIVA [Suspect]
     Indication: CHRONIC OBSTRUCTIVE PULMONARY DISEASE
     Dosage: 18 MCG
     Route: 055
     Dates: start: 201207
  2. SIMVASTATIN [Concomitant]
  3. PROTONIX [Concomitant]
  4. RANEXA [Concomitant]
  5. PLAVIX [Concomitant]
  6. SINGULAIR [Concomitant]
  7. NITROGLYCERIN [Concomitant]
  8. ALTACE [Concomitant]

REACTIONS (2)
  - Dyspnoea [Not Recovered/Not Resolved]
  - Vertigo [Recovered/Resolved]
